FAERS Safety Report 5429217-4 (Version None)
Quarter: 2007Q3

REPORT INFORMATION
  Report Type: 
  Country: None (occurrence: None)
  Receive Date: 20070829
  Receipt Date: 20070824
  Transmission Date: 20080115
  Serious: Yes (Other)
  Sender: FDA-Public Use
  Company Number: HQWYE208017JUL04

PATIENT
  Sex: Female
  Weight: 90.8 kg

DRUGS (2)
  1. PREMARIN [Suspect]
     Indication: HORMONE REPLACEMENT THERAPY
     Dosage: 0.625 MG DAILY TO 1.25 MG DAILY
     Route: 048
     Dates: start: 19800101, end: 20000101
  2. PROVERA [Suspect]
     Indication: HORMONE REPLACEMENT THERAPY
     Dosage: 2.5 MG
     Route: 048
     Dates: end: 19990201

REACTIONS (3)
  - ARTHRALGIA [None]
  - BREAST CANCER METASTATIC [None]
  - MYALGIA [None]
